FAERS Safety Report 6634172-5 (Version None)
Quarter: 2010Q1

REPORT INFORMATION
  Report Type: 
  Country: None (occurrence: None)
  Receive Date: 20100315
  Receipt Date: 20100310
  Transmission Date: 20100710
  Serious: Yes (Life-Threatening, Hospitalization)
  Sender: FDA-Public Use
  Company Number: CH-ASTRAZENECA-2010SE10586

PATIENT
  Age: 58 Year
  Sex: Male

DRUGS (13)
  1. SEROQUEL [Suspect]
     Route: 048
     Dates: end: 20090228
  2. MERONEM [Suspect]
     Route: 040
     Dates: start: 20090203, end: 20090228
  3. NEXIUM [Suspect]
     Route: 048
     Dates: start: 20090203, end: 20090228
  4. ZESTRIL [Suspect]
     Route: 048
     Dates: end: 20100228
  5. VANCOMYCIN HCL [Suspect]
     Route: 040
     Dates: start: 20090203, end: 20090228
  6. HALDOL [Suspect]
     Route: 048
     Dates: start: 20081228, end: 20090228
  7. DIPYRONE TAB [Suspect]
     Route: 048
     Dates: start: 20081228, end: 20090228
  8. ALDACTONE [Suspect]
     Route: 048
     Dates: end: 20090220
  9. LASIX [Suspect]
     Route: 042
     Dates: end: 20100228
  10. OXYCONTIN [Concomitant]
     Route: 048
  11. TORSEMIDE [Concomitant]
  12. CLONAZEPAM [Concomitant]
     Route: 048
  13. ASPIRIN [Concomitant]
     Route: 048

REACTIONS (1)
  - AGRANULOCYTOSIS [None]
